FAERS Safety Report 23039783 (Version 1)
Quarter: 2023Q4

REPORT INFORMATION
  Report Type: Spontaneous
  Country: FR (occurrence: FR)
  Receive Date: 20231006
  Receipt Date: 20231006
  Transmission Date: 20240110
  Serious: Yes (Hospitalization, Other)
  Sender: FDA-Public Use
  Company Number: None

PATIENT
  Age: 51 Year
  Sex: Female

DRUGS (3)
  1. HEPARIN CALCIUM [Suspect]
     Active Substance: HEPARIN CALCIUM
     Indication: Peripheral ischaemia
     Dosage: UNK
     Dates: start: 20230620, end: 20230623
  2. LOVENOX [Suspect]
     Active Substance: ENOXAPARIN SODIUM
     Indication: Peripheral ischaemia
     Dosage: UNK
     Dates: start: 20230623
  3. HEPARIN SODIUM [Suspect]
     Active Substance: HEPARIN SODIUM
     Indication: Peripheral ischaemia
     Dosage: UNK; 72000 UI/24H, 10 000 UI/2 ML, SOLUTION FOR INJECTION IN AMPOULE
     Dates: start: 20230702

REACTIONS (5)
  - Heparin-induced thrombocytopenia [Recovered/Resolved]
  - Ischaemic stroke [Unknown]
  - Pulmonary embolism [Unknown]
  - Deep vein thrombosis [Unknown]
  - Product use in unapproved indication [Unknown]

NARRATIVE: CASE EVENT DATE: 20230702
